FAERS Safety Report 7433425-0 (Version None)
Quarter: 2011Q2

REPORT INFORMATION
  Report Type: 
  Country: None (occurrence: None)
  Receive Date: 20110422
  Receipt Date: 20110419
  Transmission Date: 20111010
  Serious: No
  Sender: FDA-Public Use
  Company Number: US-B.I. PHARMACEUTICALS,INC./RIDGEFIELD-2011-BP-11210BP

PATIENT
  Sex: Female

DRUGS (4)
  1. MEDICATION NOT FURTHER SPECIFIED [Concomitant]
     Route: 048
  2. PRADAXA [Suspect]
     Indication: ATRIAL FIBRILLATION
     Dosage: 300 MG
     Route: 048
     Dates: start: 20110301
  3. METHOTREXATE [Concomitant]
     Indication: RHEUMATOID ARTHRITIS
     Route: 048
  4. CALCIUM [Concomitant]
     Indication: PROPHYLAXIS
     Route: 048

REACTIONS (3)
  - OESOPHAGEAL PAIN [None]
  - ABDOMINAL PAIN [None]
  - THROAT IRRITATION [None]
